FAERS Safety Report 13902999 (Version 2)
Quarter: 2018Q2

REPORT INFORMATION
  Report Type: Spontaneous
  Country: ES (occurrence: ES)
  Receive Date: 20170824
  Receipt Date: 20180622
  Transmission Date: 20180711
  Serious: Yes (Other)
  Sender: FDA-Public Use
  Company Number: ES-AMGEN-ESPSP2017124639

PATIENT
  Age: 30 Year
  Sex: Female

DRUGS (7)
  1. FRUSEMIDE [Suspect]
     Active Substance: FUROSEMIDE
     Indication: HYPERPARATHYROIDISM PRIMARY
     Dosage: 20 MG, Q8H
     Route: 065
  2. BETAMETHASONE. [Suspect]
     Active Substance: BETAMETHASONE
     Indication: MATERNAL THERAPY TO ENHANCE FOETAL LUNG MATURITY
     Dosage: 12 MG, 2 DOSES 24 HOURS APART
     Route: 030
  3. CALCITONIN [Suspect]
     Active Substance: CALCITONIN
     Indication: HYPERCALCAEMIA
     Dosage: 100 IU, Q6H
     Route: 065
  4. ZOLEDRONIC ACID [Concomitant]
     Active Substance: ZOLEDRONIC ACID
     Indication: BLOOD CALCIUM INCREASED
  5. MIMPARA [Suspect]
     Active Substance: CINACALCET HYDROCHLORIDE
     Indication: HYPERCALCAEMIA
     Dosage: 60 MG, Q12H
     Route: 065
  6. CALCITONIN [Suspect]
     Active Substance: CALCITONIN
     Indication: HYPERPARATHYROIDISM PRIMARY
  7. MIMPARA [Suspect]
     Active Substance: CINACALCET HYDROCHLORIDE
     Indication: HYPERPARATHYROIDISM PRIMARY
     Dosage: 30 MG, BID
     Route: 065

REACTIONS (12)
  - Caesarean section [Unknown]
  - Maternal exposure during pregnancy [Recovered/Resolved]
  - Drug ineffective [Unknown]
  - Oedema peripheral [Unknown]
  - Vision blurred [Unknown]
  - Headache [Unknown]
  - Polydipsia [Unknown]
  - Vomiting [Unknown]
  - Pre-eclampsia [Unknown]
  - Proteinuria [Unknown]
  - Polyuria [Unknown]
  - Nausea [Unknown]
